FAERS Safety Report 9378154 (Version 3)
Quarter: 2013Q4

REPORT INFORMATION
  Report Type: Spontaneous
  Country: GB (occurrence: GB)
  Receive Date: 20130701
  Receipt Date: 20131121
  Transmission Date: 20140711
  Serious: Yes (Other)
  Sender: FDA-Public Use
  Company Number: GB-GLAXOSMITHKLINE-B0902601A

PATIENT
  Sex: Female

DRUGS (2)
  1. AVANDIA [Suspect]
     Indication: DIABETES MELLITUS
     Dosage: 4MG PER DAY
     Route: 048
     Dates: start: 20040629, end: 2004
  2. METFORMIN [Concomitant]

REACTIONS (6)
  - Angina pectoris [Unknown]
  - Alopecia [Unknown]
  - Lip swelling [Unknown]
  - Swollen tongue [Unknown]
  - Local swelling [Unknown]
  - Weight increased [Unknown]
